FAERS Safety Report 6392464-1 (Version None)
Quarter: 2009Q4

REPORT INFORMATION
  Report Type: 
  Country: None (occurrence: None)
  Receive Date: 20091005
  Receipt Date: 20090925
  Transmission Date: 20100525
  Serious: Yes (Hospitalization)
  Sender: FDA-Public Use
  Company Number: OSCN-NO-0909S-0435

PATIENT
  Age: 72 Year
  Sex: Male

DRUGS (7)
  1. OMNISCAN [Suspect]
     Indication: DRUG USE FOR UNKNOWN INDICATION
     Dosage: 12 ML, SINGLE DOSE, I.V.
     Route: 042
     Dates: start: 20050814, end: 20050814
  2. GADOPENTATE DIMEGLUMINE (MAGNEVIST) [Suspect]
     Indication: DRUG USE FOR UNKNOWN INDICATION
     Dosage: 12 ML, SINGLE DOSE
     Dates: start: 20050322, end: 20050322
  3. GADOPENTATE DIMEGLUMINE (MAGNEVIST) [Suspect]
     Indication: DRUG USE FOR UNKNOWN INDICATION
     Dosage: 12 ML, SINGLE DOSE
     Dates: start: 20070423, end: 20070423
  4. PROHANCE [Suspect]
     Indication: DRUG USE FOR UNKNOWN INDICATION
     Dosage: 13 ML, SINGLE DOSE
     Dates: start: 20060309, end: 20060309
  5. PROHANCE [Suspect]
     Indication: DRUG USE FOR UNKNOWN INDICATION
     Dosage: 13 ML, SINGLE DOSE
     Dates: start: 20061010, end: 20061010
  6. PROHANCE [Suspect]
     Indication: DRUG USE FOR UNKNOWN INDICATION
     Dosage: 13 ML, SINGLE DOSE
     Dates: start: 20071214, end: 20071214
  7. AMLODIPINE [Concomitant]

REACTIONS (3)
  - HAEMODIALYSIS [None]
  - NEPHROGENIC SYSTEMIC FIBROSIS [None]
  - RENAL FAILURE CHRONIC [None]
